FAERS Safety Report 19423859 (Version 1)
Quarter: 2021Q2

REPORT INFORMATION
  Report Type: Spontaneous
  Country: CA (occurrence: CA)
  Receive Date: 20210616
  Receipt Date: 20210616
  Transmission Date: 20210717
  Serious: Yes (Hospitalization)
  Sender: FDA-Public Use
  Company Number: CA-MYLANLABS-2021M1034219

PATIENT
  Age: 68 Year
  Sex: Female
  Weight: 103 kg

DRUGS (11)
  1. ANASTROZOLE. [Concomitant]
     Active Substance: ANASTROZOLE
     Dosage: UNK
  2. ARIPIPRAZOLE. [Concomitant]
     Active Substance: ARIPIPRAZOLE
     Dosage: UNK
  3. ACETAMINOPHEN. [Concomitant]
     Active Substance: ACETAMINOPHEN
     Dosage: UNK
  4. CLOMIPRAMINE [Concomitant]
     Active Substance: CLOMIPRAMINE
     Dosage: UNK
  5. DICLOFENAC [Concomitant]
     Active Substance: DICLOFENAC
     Dosage: UNK
  6. ROSUVASTATIN. [Concomitant]
     Active Substance: ROSUVASTATIN
     Dosage: UNK
  7. MYLAN?BUPROPION XL [Suspect]
     Active Substance: BUPROPION
     Indication: DEPRESSION
     Dosage: 450 MILLIGRAM, QD
     Route: 048
  8. ASA [Concomitant]
     Active Substance: ASPIRIN
     Dosage: UNK
     Route: 065
  9. DULOXETINE SANDOZ [Concomitant]
     Active Substance: DULOXETINE
     Dosage: UNK
  10. PROPRANOLOL [Concomitant]
     Active Substance: PROPRANOLOL HYDROCHLORIDE
     Dosage: UNK
  11. CALCIUM [Concomitant]
     Active Substance: CALCIUM
     Dosage: UNK

REACTIONS (10)
  - Urinary incontinence [Unknown]
  - Pyrexia [Unknown]
  - Hypertension [Unknown]
  - Heart rate increased [Unknown]
  - Clonic convulsion [Unknown]
  - Tremor [Unknown]
  - Pneumonia aspiration [Unknown]
  - Cerebrovascular accident [Unknown]
  - Loss of consciousness [Unknown]
  - Respiration abnormal [Unknown]
